FAERS Safety Report 19197248 (Version 1)
Quarter: 2021Q2

REPORT INFORMATION
  Report Type: Spontaneous
  Country: US (occurrence: US)
  Receive Date: 20210429
  Receipt Date: 20210429
  Transmission Date: 20210717
  Serious: No
  Sender: FDA-Public Use
  Company Number: US-PERRIGO-20US016831

PATIENT
  Age: 77 Year
  Sex: Male

DRUGS (4)
  1. PROPRANOLOL [Concomitant]
     Active Substance: PROPRANOLOL HYDROCHLORIDE
     Indication: PRODUCT USED FOR UNKNOWN INDICATION
     Dosage: UNKNOWN, UNKNOWN
     Route: 065
  2. CALCIUM ACETATE. [Suspect]
     Active Substance: CALCIUM ACETATE
     Indication: BLOOD PHOSPHORUS INCREASED
     Dosage: 800 MG, UNKNOWN
     Route: 048
     Dates: start: 20200715, end: 20200721
  3. ARIPIPRAZOLE. [Concomitant]
     Active Substance: ARIPIPRAZOLE
     Indication: BIPOLAR I DISORDER
     Dosage: 20 MG, QD
     Route: 048
  4. SEROQUEL [Concomitant]
     Active Substance: QUETIAPINE FUMARATE
     Indication: INSOMNIA
     Dosage: UNKNOWN, UNKNOWN
     Route: 065

REACTIONS (1)
  - Tardive dyskinesia [Recovered/Resolved]

NARRATIVE: CASE EVENT DATE: 20200715
